FAERS Safety Report 23601417 (Version 2)
Quarter: 2024Q2

REPORT INFORMATION
  Report Type: Spontaneous
  Country: US (occurrence: US)
  Receive Date: 20240306
  Receipt Date: 20240508
  Transmission Date: 20240715
  Serious: No
  Sender: FDA-Public Use
  Company Number: US-PFIZER INC-202400056925

PATIENT
  Age: 73 Year
  Sex: Female
  Weight: 65.306 kg

DRUGS (3)
  1. PAXLOVID [Suspect]
     Active Substance: NIRMATRELVIR\RITONAVIR
     Indication: COVID-19 treatment
     Dosage: [NIRMATRELVIR 300 MG]/[RITONAVIR 100 MG]; 2X/DAY;
     Dates: start: 20240219, end: 20240224
  2. ALBUTEROL SULFATE [Concomitant]
     Active Substance: ALBUTEROL SULFATE
     Dosage: INHALE 2PUFF EVERY 4 HOURS PRN SYMPTOMS
     Dates: start: 20240301, end: 20240305
  3. CICLESONIDE [Concomitant]
     Active Substance: CICLESONIDE
     Dosage: 80 MCG/ACTUATION INHALE BID
     Dates: start: 20240301, end: 20240305

REACTIONS (2)
  - COVID-19 [Recovered/Resolved]
  - Disease recurrence [Recovered/Resolved]

NARRATIVE: CASE EVENT DATE: 20240301
